FAERS Safety Report 4888231-8 (Version None)
Quarter: 2006Q1

REPORT INFORMATION
  Report Type: 
  Country: None (occurrence: None)
  Receive Date: 20060119
  Receipt Date: 20060105
  Transmission Date: 20060701
  Serious: Yes (Hospitalization)
  Sender: FDA-Public Use
  Company Number: 2006003207

PATIENT
  Age: 37 Year
  Sex: Female

DRUGS (2)
  1. PARACETAMOL/PSEUDOEPHEDRINE (PARACETAMOL, PSEUDOEPHEDRINE) [Suspect]
     Indication: SINUSITIS
     Dosage: TWICE DAILY, ORAL
     Route: 048
  2. AMOXICILLIN [Suspect]
     Indication: SINUSITIS
     Dosage: UNSPECIFIED DOSE TWICE DAILY

REACTIONS (1)
  - COLITIS ISCHAEMIC [None]
